FAERS Safety Report 4500632-6 (Version None)
Quarter: 2004Q4

REPORT INFORMATION
  Report Type: 
  Country: None (occurrence: None)
  Receive Date: 20041110
  Receipt Date: 20041014
  Transmission Date: 20050328
  Serious: Yes (Hospitalization, Disabling, Other)
  Sender: FDA-Public Use
  Company Number: US_0411107810

PATIENT
  Age: 41 Year
  Sex: Male
  Weight: 74 kg

DRUGS (9)
  1. HUMULIN L [Suspect]
     Indication: DIABETES MELLITUS
     Dosage: 10 U/2 DAY
     Dates: start: 19920101
  2. HUMALOG [Concomitant]
     Indication: DIABETES MELLITUS
     Dates: start: 19970101, end: 20031001
  3. ASPIRIN [Concomitant]
  4. CENTRUM [Concomitant]
  5. PREVACID [Concomitant]
  6. HUMULIN-HUMAN ULTRALENETE INSULIN (RDNA) (HUMAN INSU [Suspect]
     Indication: DIABETES MELLITUS
     Dates: start: 19940610
  7. HUMULIN R [Suspect]
     Indication: DIABETES MELLITUS
     Dates: start: 19920101
  8. INSULIN-INSULIN-ANIMAL (UNKNOWN FORMULATION) (INSUL [Suspect]
     Indication: DIABETES MELLITUS
     Dates: start: 19960101, end: 19920101
  9. HUMULIN N [Suspect]
     Indication: DIABETES MELLITUS
     Dates: start: 19920101, end: 19920101

REACTIONS (12)
  - ABASIA [None]
  - BRAIN DAMAGE [None]
  - DEPRESSED LEVEL OF CONSCIOUSNESS [None]
  - DISTURBANCE IN ATTENTION [None]
  - DIZZINESS [None]
  - FATIGUE [None]
  - HYPOGLYCAEMIC SEIZURE [None]
  - INCOHERENT [None]
  - INGUINAL HERNIA [None]
  - MEMORY IMPAIRMENT [None]
  - PHARMACEUTICAL PRODUCT COMPLAINT [None]
  - TENDON INJURY [None]
